FAERS Safety Report 6383850-4 (Version None)
Quarter: 2009Q3

REPORT INFORMATION
  Report Type: 
  Country: None (occurrence: None)
  Receive Date: 20090929
  Receipt Date: 20090929
  Transmission Date: 20100115
  Serious: Yes (Hospitalization)
  Sender: FDA-Public Use
  Company Number: None

PATIENT
  Age: 64 Year
  Sex: Male
  Weight: 87 kg

DRUGS (6)
  1. DAPTOMYCIN 500 MG CUBIST [Suspect]
     Indication: ANKLE OPERATION
     Dosage: 500 MG ONCE DAILY IV DRIP
     Route: 041
     Dates: start: 20090805, end: 20090922
  2. DAPTOMYCIN 500 MG CUBIST [Suspect]
     Indication: OSTEOMYELITIS
     Dosage: 500 MG ONCE DAILY IV DRIP
     Route: 041
     Dates: start: 20090805, end: 20090922
  3. FLECAINIDE ACETATE [Concomitant]
  4. COUMADIN [Concomitant]
  5. CALAN [Concomitant]
  6. GABAPENTIN [Concomitant]

REACTIONS (1)
  - EOSINOPHILIC PNEUMONIA [None]
